FAERS Safety Report 4658453-X (Version None)
Quarter: 2005Q2

REPORT INFORMATION
  Report Type: 
  Country: None (occurrence: None)
  Receive Date: 20050511
  Receipt Date: 20050506
  Transmission Date: 20051028
  Serious: Yes (Hospitalization)
  Sender: FDA-Public Use
  Company Number: US-GLAXOSMITHKLINE-A0557566A

PATIENT
  Age: 77 Year
  Sex: Female

DRUGS (10)
  1. COREG [Suspect]
     Route: 048
     Dates: start: 20040801
  2. XANAX [Concomitant]
  3. NITROGLYCERIN [Concomitant]
  4. CRESTOR [Concomitant]
  5. ASPIRIN [Concomitant]
  6. BENICAR HCT [Concomitant]
  7. PLAVIX [Concomitant]
  8. MORPHINE [Concomitant]
  9. LOVENOX [Concomitant]
  10. PHENERGAN [Concomitant]

REACTIONS (15)
  - ANGINA UNSTABLE [None]
  - BLOOD PRESSURE FLUCTUATION [None]
  - CHEST PAIN [None]
  - DRUG INEFFECTIVE [None]
  - DYSPNOEA [None]
  - DYSPNOEA EXERTIONAL [None]
  - EMPHYSEMA [None]
  - ENERGY INCREASED [None]
  - FLUSHING [None]
  - HYPERTENSION [None]
  - HYPOTENSION [None]
  - NAUSEA [None]
  - OEDEMA PERIPHERAL [None]
  - PRURITUS [None]
  - SEASONAL ALLERGY [None]
